FAERS Safety Report 8821478 (Version 2)
Quarter: 2012Q4

REPORT INFORMATION
  Report Type: 
  Country: ES (occurrence: ES)
  Receive Date: 20121002
  Receipt Date: 20121120
  Transmission Date: 20130627
  Serious: Yes (Other)
  Sender: FDA-Public Use
  Company Number: PHHY2012ES084522

PATIENT
  Age: 51 Year
  Sex: Male

DRUGS (2)
  1. METHOTREXATE [Suspect]
     Indication: RHEUMATOID ARTHRITIS
     Dosage: 10 mg, QW
  2. LEFLUNOMIDE [Suspect]
     Indication: RHEUMATOID ARTHRITIS
     Dosage: 10 mg, daily

REACTIONS (6)
  - Histiocytosis haematophagic [Recovering/Resolving]
  - Pancytopenia [Recovering/Resolving]
  - Coagulopathy [Recovered/Resolved]
  - Visceral leishmaniasis [Recovering/Resolving]
  - Hepatosplenomegaly [Recovering/Resolving]
  - Pyrexia [Recovering/Resolving]
